FAERS Safety Report 11322024 (Version 2)
Quarter: 2015Q3

REPORT INFORMATION
  Report Type: Report from Study
  Country: MX (occurrence: MX)
  Receive Date: 20150729
  Receipt Date: 20150902
  Transmission Date: 20151125
  Serious: Yes (Hospitalization)
  Sender: FDA-Public Use
  Company Number: PHHY2014MX162926

PATIENT
  Sex: Male

DRUGS (1)
  1. GLIVEC [Suspect]
     Active Substance: IMATINIB MESYLATE
     Indication: CHRONIC MYELOID LEUKAEMIA
     Dosage: 400 MG, UNK
     Route: 065
     Dates: start: 20141029

REACTIONS (6)
  - Secondary immunodeficiency [Unknown]
  - Blood uric acid abnormal [Recovered/Resolved]
  - Peripheral swelling [Recovered/Resolved]
  - Pharyngitis [Unknown]
  - Leukocytosis [Not Recovered/Not Resolved]
  - Blast crisis in myelogenous leukaemia [Unknown]
